FAERS Safety Report 9601633 (Version 1)
Quarter: 2013Q4

REPORT INFORMATION
  Report Type: Spontaneous
  Country: US (occurrence: US)
  Receive Date: 20131007
  Receipt Date: 20131007
  Transmission Date: 20140711
  Serious: Yes (Other)
  Sender: FDA-Public Use
  Company Number: US-BRISTOL-MYERS SQUIBB COMPANY-19494939

PATIENT
  Sex: Male

DRUGS (2)
  1. BYDUREON 2MG SUSPENSION [Suspect]
     Route: 058
  2. CIALIS [Concomitant]

REACTIONS (1)
  - Myocardial infarction [Unknown]
